FAERS Safety Report 7652689-1 (Version None)
Quarter: 2011Q3

REPORT INFORMATION
  Report Type: 
  Country: None (occurrence: None)
  Receive Date: 20110803
  Receipt Date: 20110728
  Transmission Date: 20111222
  Serious: Yes (Death)
  Sender: FDA-Public Use
  Company Number: US-GENZYME-CAMP-1001786

PATIENT
  Sex: Female

DRUGS (2)
  1. CAMPATH [Suspect]
     Dosage: UNK
     Route: 058
  2. CAMPATH [Suspect]
     Indication: PRODUCT USED FOR UNKNOWN INDICATION
     Dosage: UNK
     Route: 042

REACTIONS (2)
  - INFUSION RELATED REACTION [None]
  - DISEASE PROGRESSION [None]
